FAERS Safety Report 15205724 (Version 1)
Quarter: 2018Q3

REPORT INFORMATION
  Report Type: Spontaneous
  Country: US (occurrence: US)
  Receive Date: 20180727
  Receipt Date: 20180727
  Transmission Date: 20181010
  Serious: Yes (Other)
  Sender: FDA-Public Use
  Company Number: US-INGENUS PHARMACEUTICALS, LLC-INF201807-000721

PATIENT
  Age: 10 Month
  Sex: Male

DRUGS (5)
  1. TOPOTECAN [Suspect]
     Active Substance: TOPOTECAN HYDROCHLORIDE
     Indication: RETINOBLASTOMA
  2. CARBOPLATIN. [Suspect]
     Active Substance: CARBOPLATIN
     Indication: RETINOBLASTOMA
     Dosage: FOUR CYCLES
     Route: 013
  3. VINCRISTINE [Concomitant]
     Active Substance: VINCRISTINE
     Indication: RETINOBLASTOMA
     Dosage: FOUR CYCLES
  4. ETOPOSIDE. [Concomitant]
     Active Substance: ETOPOSIDE
     Indication: RETINOBLASTOMA
     Dosage: FOUR CYCLES
  5. MELPHALAN. [Suspect]
     Active Substance: MELPHALAN
     Indication: RETINOBLASTOMA

REACTIONS (3)
  - Optic ischaemic neuropathy [Recovering/Resolving]
  - Product use in unapproved indication [Unknown]
  - Sudden visual loss [Recovering/Resolving]
